FAERS Safety Report 19468407 (Version 2)
Quarter: 2021Q3

REPORT INFORMATION
  Report Type: Report from Study
  Country: PL (occurrence: PL)
  Receive Date: 20210628
  Receipt Date: 20210713
  Transmission Date: 20211014
  Serious: Yes (Death)
  Sender: FDA-Public Use
  Company Number: PL-ROCHE-2857279

PATIENT
  Age: 70 Year
  Sex: Male
  Weight: 98 kg

DRUGS (24)
  1. IPP (POLAND) [Concomitant]
     Route: 048
     Dates: start: 20201215
  2. AVASART [Concomitant]
     Route: 048
     Dates: start: 20210430
  3. BISEPTOL [Concomitant]
     Active Substance: SULFAMETHOXAZOLE\TRIMETHOPRIM
     Route: 048
     Dates: start: 20210409
  4. PARACETAMOL [Concomitant]
     Active Substance: ACETAMINOPHEN
     Route: 048
     Dates: start: 20210610, end: 20210610
  5. HEVIRAN [Concomitant]
     Active Substance: ACYCLOVIR
     Route: 048
     Dates: start: 20210409
  6. CLEMASTINE [Concomitant]
     Active Substance: CLEMASTINE
     Route: 042
     Dates: start: 20210610, end: 20210610
  7. ZARZIO [Concomitant]
     Active Substance: FILGRASTIM
     Route: 058
     Dates: start: 20210521, end: 20210525
  8. AMERTIL [Concomitant]
     Active Substance: CETIRIZINE HYDROCHLORIDE
     Route: 048
     Dates: start: 20210610
  9. ELIQUIS [Concomitant]
     Active Substance: APIXABAN
     Route: 048
     Dates: start: 20201116
  10. THYROZOL [Concomitant]
     Active Substance: METHIMAZOLE
     Route: 048
     Dates: start: 201809
  11. CLEMASTINE [Concomitant]
     Active Substance: CLEMASTINE
     Route: 042
     Dates: start: 20210520, end: 20210520
  12. MOSUNETUZUMAB. [Suspect]
     Active Substance: MOSUNETUZUMAB
     Indication: B-CELL LYMPHOMA
     Dosage: DOSE LAST STUDY DRUG ADMIN PRIOR SAE 30 MG??START DATE OF MOST RECENT DOSE OF STUDY DRUG PRIOR TO SA
     Route: 042
     Dates: start: 20210401
  13. POLATUZUMAB VEDOTIN. [Suspect]
     Active Substance: POLATUZUMAB VEDOTIN
     Indication: B-CELL LYMPHOMA
     Dosage: DOSE LAST STUDY DRUG ADMIN PRIOR SAE 176 MG
     Route: 042
     Dates: start: 20210401
  14. MILURIT [Concomitant]
     Active Substance: ALLOPURINOL
     Route: 048
     Dates: start: 20210401
  15. AMERTIL [Concomitant]
     Active Substance: CETIRIZINE HYDROCHLORIDE
     Route: 048
     Dates: start: 20210520, end: 20210520
  16. PREDNISONE. [Suspect]
     Active Substance: PREDNISONE
     Indication: B-CELL LYMPHOMA
     Dosage: DOSE LAST STUDY DRUG ADMIN PRIOR SAE 100 MG??START DATE OF MOST RECENT DOSE OF STUDY DRUG PRIOR TO S
     Route: 048
     Dates: start: 20210401
  17. ATORIS [Concomitant]
     Active Substance: ATORVASTATIN CALCIUM
     Route: 048
     Dates: start: 200101
  18. DIUVER [Concomitant]
     Active Substance: TORSEMIDE
     Route: 048
     Dates: start: 20210430
  19. CYCLOPHOSPHAMIDE. [Suspect]
     Active Substance: CYCLOPHOSPHAMIDE
     Indication: B-CELL LYMPHOMA
     Dosage: START DATE OF MOST RECENT DOSE OF STUDY DRUG PRIOR TO SAE 10/JUN/2021?DOSE LAST STUDY DRUG ADMIN PRI
     Route: 042
     Dates: start: 20210401
  20. DOXORUBICIN [Suspect]
     Active Substance: DOXORUBICIN
     Indication: B-CELL LYMPHOMA
     Dosage: DOSE LAST STUDY DRUG ADMIN PRIOR SAE 108 MG
     Route: 042
     Dates: start: 20210401
  21. METOCARD ZK [Concomitant]
     Active Substance: METOPROLOL TARTRATE
     Route: 048
     Dates: start: 202101
  22. SIOFOR [Concomitant]
     Active Substance: METFORMIN HYDROCHLORIDE
     Route: 048
     Dates: start: 20210430
  23. PARACETAMOL [Concomitant]
     Active Substance: ACETAMINOPHEN
     Route: 048
     Dates: start: 20210520, end: 20210520
  24. ZARZIO [Concomitant]
     Active Substance: FILGRASTIM
     Route: 058
     Dates: start: 20210611, end: 20210615

REACTIONS (1)
  - Death [Fatal]

NARRATIVE: CASE EVENT DATE: 20210619
